FAERS Safety Report 19746575 (Version 3)
Quarter: 2022Q2

REPORT INFORMATION
  Report Type: Report from Study
  Country: PT (occurrence: PT)
  Receive Date: 20210825
  Receipt Date: 20220509
  Transmission Date: 20220720
  Serious: Yes (Other)
  Sender: FDA-Public Use
  Company Number: NVSC2021PT191151

PATIENT
  Age: 47 Year
  Sex: Female

DRUGS (1)
  1. GILENYA [Suspect]
     Active Substance: FINGOLIMOD HYDROCHLORIDE
     Indication: Multiple sclerosis
     Dosage: 0.5 MG, QD
     Route: 048
     Dates: start: 202102, end: 202203

REACTIONS (6)
  - Retinal detachment [Unknown]
  - Macular oedema [Unknown]
  - Eye injury [Recovering/Resolving]
  - Visual impairment [Recovering/Resolving]
  - Visual acuity reduced [Unknown]
  - Maculopathy [Unknown]

NARRATIVE: CASE EVENT DATE: 20210804
